FAERS Safety Report 17993598 (Version 2)
Quarter: 2020Q3

REPORT INFORMATION
  Report Type: Other
  Country: US (occurrence: US)
  Receive Date: 20200708
  Receipt Date: 20200727
  Transmission Date: 20201103
  Serious: Yes (Death)
  Sender: FDA-Public Use
  Company Number: US-ROCHE-2637870

PATIENT
  Age: 68 Year
  Sex: Female
  Weight: 53.39 kg

DRUGS (2)
  1. TECENTRIQ [Suspect]
     Active Substance: ATEZOLIZUMAB
     Indication: SMALL CELL LUNG CANCER
  2. TECENTRIQ [Suspect]
     Active Substance: ATEZOLIZUMAB
     Indication: LUNG NEOPLASM MALIGNANT
     Dosage: ADMINISTER 1200 MG AS AN INTRAVENOUS INFUSION OVER
     Route: 041
     Dates: start: 20200520, end: 20200610

REACTIONS (1)
  - Death [Fatal]

NARRATIVE: CASE EVENT DATE: 20200619
